FAERS Safety Report 25185140 (Version 1)
Quarter: 2025Q2

REPORT INFORMATION
  Report Type: Report from Study
  Country: US (occurrence: US)
  Receive Date: 20250410
  Receipt Date: 20250410
  Transmission Date: 20250716
  Serious: Yes (Hospitalization, Other)
  Sender: ABBVIE
  Company Number: US-ABBVIE-6210521

PATIENT
  Age: 37 Year
  Sex: Male

DRUGS (1)
  1. RINVOQ [Suspect]
     Active Substance: UPADACITINIB
     Indication: Colitis ulcerative
     Route: 048
     Dates: start: 20250321

REACTIONS (4)
  - Nausea [Unknown]
  - Vomiting [Unknown]
  - Semen discolouration [Not Recovered/Not Resolved]
  - Encephalitis autoimmune [Unknown]

NARRATIVE: CASE EVENT DATE: 20250101
